FAERS Safety Report 6564811-9 (Version None)
Quarter: 2010Q1

REPORT INFORMATION
  Report Type: 
  Country: None (occurrence: None)
  Receive Date: 20100201
  Receipt Date: 20100121
  Transmission Date: 20100710
  Serious: Yes (Hospitalization)
  Sender: FDA-Public Use
  Company Number: DE-PFIZER INC-2010000902

PATIENT
  Age: 71 Year
  Sex: Female
  Weight: 57 kg

DRUGS (5)
  1. IRINOTECAN HCL [Suspect]
     Indication: COLORECTAL CANCER METASTATIC
     Dosage: 180 MG/M2, EVERY 14DAYS
     Route: 042
     Dates: start: 20091026
  2. FLUOROURACIL [Suspect]
     Indication: COLORECTAL CANCER METASTATIC
     Dosage: 1200 MG/M2, EVERY 14 DAYS
     Route: 042
     Dates: start: 20091026
  3. FLUOROURACIL [Suspect]
     Dosage: 200 MG/M2, EVERY 14DAYS
     Route: 042
     Dates: start: 20091026
  4. CETUXIMAB [Suspect]
     Indication: COLORECTAL CANCER METASTATIC
     Dosage: 300 MG, WEEKLY
     Route: 042
     Dates: start: 20091026
  5. FOLINIC ACID [Suspect]
     Indication: COLORECTAL CANCER METASTATIC
     Dosage: 400 MG/M2, EVERY 14DAYS
     Route: 042
     Dates: start: 20091026

REACTIONS (1)
  - PNEUMOCYSTIS JIROVECI PNEUMONIA [None]
